FAERS Safety Report 24866142 (Version 2)
Quarter: 2025Q1

REPORT INFORMATION
  Report Type: Spontaneous
  Country: US (occurrence: US)
  Receive Date: 20250121
  Receipt Date: 20250228
  Transmission Date: 20250408
  Serious: No
  Sender: GILEAD
  Company Number: US-GILEAD-2025-0700424

PATIENT
  Age: 61 Year
  Sex: Female

DRUGS (4)
  1. EPCLUSA [Suspect]
     Active Substance: SOFOSBUVIR\VELPATASVIR
     Indication: Hepatitis C
     Dosage: TAKING 3 PILLS OF EPCLUSA PER DAY, WITH BREAKFAST LUNCH AND DINNER FOR THE LAST 20 DAYS
     Route: 065
  2. OXYCODONE [Concomitant]
     Active Substance: OXYCODONE
  3. SYMBICORT [Concomitant]
     Active Substance: BUDESONIDE\FORMOTEROL FUMARATE DIHYDRATE
  4. ALBUTEROL [Concomitant]
     Active Substance: ALBUTEROL

REACTIONS (4)
  - Fatigue [Unknown]
  - Visual impairment [Unknown]
  - Irritability [Unknown]
  - Inappropriate schedule of product administration [Recovered/Resolved]
